FAERS Safety Report 8299808-4 (Version None)
Quarter: 2012Q2

REPORT INFORMATION
  Report Type: 
  Country: None (occurrence: None)
  Receive Date: 20120419
  Receipt Date: 20120419
  Transmission Date: 20120825
  Serious: Yes (Other)
  Sender: FDA-Public Use
  Company Number: None

PATIENT
  Sex: Male
  Weight: 99.79 kg

DRUGS (12)
  1. FLAGYL [Concomitant]
  2. CELEXA [Concomitant]
  3. CIPROFLOXACIN EXTENDED RELEASE [Suspect]
     Indication: ABDOMINAL PAIN
     Dosage: 500MG
     Route: 048
     Dates: start: 20120404, end: 20120416
  4. CIPROFLOXACIN EXTENDED RELEASE [Suspect]
     Indication: ABDOMINAL DISTENSION
     Dosage: 500MG
     Route: 048
     Dates: start: 20120404, end: 20120416
  5. CIPROFLOXACIN EXTENDED RELEASE [Suspect]
     Indication: CROHN'S DISEASE
     Dosage: 500MG
     Route: 048
     Dates: start: 20120404, end: 20120416
  6. ENTOCORT EC [Concomitant]
  7. CALCIUM + D [Concomitant]
  8. HUMIRA [Concomitant]
  9. PENTASA [Concomitant]
  10. LIBRAX [Concomitant]
  11. ZEGERID [Concomitant]
  12. AMBIEN [Concomitant]

REACTIONS (1)
  - TENDONITIS [None]
